FAERS Safety Report 6177198-0 (Version None)
Quarter: 2009Q2

REPORT INFORMATION
  Report Type: 
  Country: None (occurrence: None)
  Receive Date: 20090504
  Receipt Date: 20090427
  Transmission Date: 20091009
  Serious: Yes (Other)
  Sender: FDA-Public Use
  Company Number: DE-B.I. PHARMACEUTICALS,INC./RIDGEFIELD-2009-DE-03412DE

PATIENT
  Sex: Female
  Weight: 36 kg

DRUGS (1)
  1. ATROVENT [Suspect]
     Dosage: 13PUF
     Route: 055

REACTIONS (3)
  - HEADACHE [None]
  - MEDICATION ERROR [None]
  - TREMOR [None]
